FAERS Safety Report 19878331 (Version 1)
Quarter: 2021Q3

REPORT INFORMATION
  Report Type: Spontaneous
  Country: US (occurrence: US)
  Receive Date: 20210924
  Receipt Date: 20210924
  Transmission Date: 20211014
  Serious: Yes (Hospitalization)
  Sender: FDA-Public Use
  Company Number: US-STRIDES ARCOLAB LIMITED-2021SP028035

PATIENT
  Age: 32 Year
  Sex: Male

DRUGS (4)
  1. CYCLOPHOSPHAMIDE. [Suspect]
     Active Substance: CYCLOPHOSPHAMIDE
     Indication: BLASTIC PLASMACYTOID DENDRITIC CELL NEOPLASIA
     Dosage: 750 MILLIGRAM/SQ. METER, ONCE
     Route: 042
  2. VINCRISTINE [Suspect]
     Active Substance: VINCRISTINE
     Indication: BLASTIC PLASMACYTOID DENDRITIC CELL NEOPLASIA
     Dosage: 1.4 MILLIGRAM/SQ. METER (CAPPED AT 2MG), ONCE
     Route: 042
  3. DOXORUBICIN [Suspect]
     Active Substance: DOXORUBICIN
     Indication: BLASTIC PLASMACYTOID DENDRITIC CELL NEOPLASIA
     Dosage: 50 MILLIGRAM/SQ. METER, ONCE
     Route: 042
  4. PREDNISOLONE. [Suspect]
     Active Substance: PREDNISOLONE
     Indication: BLASTIC PLASMACYTOID DENDRITIC CELL NEOPLASIA
     Dosage: 100 MILLIGRAM, DAILY FOR 5 DAYS
     Route: 048

REACTIONS (7)
  - Retinal haemorrhage [Unknown]
  - Tumour lysis syndrome [Unknown]
  - Retinal exudates [Unknown]
  - Coagulopathy [Unknown]
  - Blindness [Unknown]
  - Macular oedema [Unknown]
  - Off label use [Unknown]
